FAERS Safety Report 5036494-0 (Version None)
Quarter: 2006Q2

REPORT INFORMATION
  Report Type: 
  Country: None (occurrence: None)
  Receive Date: 20060628
  Receipt Date: 20060620
  Transmission Date: 20061013
  Serious: Yes (Hospitalization, Other)
  Sender: FDA-Public Use
  Company Number: GB-JNJFOC-20060604305

PATIENT
  Sex: Female
  Weight: 65 kg

DRUGS (7)
  1. REMICADE [Suspect]
     Indication: PSORIATIC ARTHROPATHY
     Route: 042
  2. FERROGRAD [Concomitant]
     Route: 065
  3. FOLIC ACID [Concomitant]
     Route: 065
  4. METHOTREXATE [Concomitant]
     Route: 065
  5. PARACETAMOL [Concomitant]
     Route: 065
  6. TRAMADOL HCL [Concomitant]
     Route: 065
  7. VIOXX [Concomitant]
     Route: 065

REACTIONS (2)
  - EPISTAXIS [None]
  - HYPERTENSION [None]
